FAERS Safety Report 5146091-4 (Version None)
Quarter: 2006Q4

REPORT INFORMATION
  Report Type: 
  Country: None (occurrence: None)
  Receive Date: 20061102
  Receipt Date: 20061019
  Transmission Date: 20070319
  Serious: Yes (Hospitalization)
  Sender: FDA-Public Use
  Company Number: 2006130464

PATIENT
  Age: 74 Year
  Sex: Female
  Weight: 55 kg

DRUGS (3)
  1. SUTENT [Suspect]
     Indication: METASTATIC RENAL CELL CARCINOMA
     Dosage: 37.5 MG (37.5 MG, 1 IN 1 D), ORAL
     Route: 048
     Dates: start: 20060627
  2. METOPROLOL TARTRATE [Concomitant]
  3. AMLODIPINE [Concomitant]

REACTIONS (11)
  - ANAEMIA [None]
  - ARTHRALGIA [None]
  - BRAIN OEDEMA [None]
  - EPILEPSY [None]
  - FATIGUE [None]
  - HEMIPARESIS [None]
  - METASTASES TO BONE [None]
  - METASTASES TO CENTRAL NERVOUS SYSTEM [None]
  - PYREXIA [None]
  - RENAL IMPAIRMENT [None]
  - TIBIA FRACTURE [None]
